FAERS Safety Report 4666610-1 (Version None)
Quarter: 2005Q2

REPORT INFORMATION
  Report Type: 
  Country: None (occurrence: None)
  Receive Date: 20050518
  Receipt Date: 20040914
  Transmission Date: 20051028
  Serious: Yes (Hospitalization, Other)
  Sender: FDA-Public Use
  Company Number: 2004233667US

PATIENT
  Age: 35 Year
  Sex: Female
  Weight: 68 kg

DRUGS (5)
  1. DEPO-PROVERA [Suspect]
     Indication: CONTRACEPTION
     Dosage: 150 MG/90 DAYS, 2ND INJ., INTRAMUSCULAR
     Route: 030
     Dates: start: 20030101, end: 20030101
  2. DEPO-PROVERA [Suspect]
     Indication: CONTRACEPTION
     Dosage: 150 MG/90 DAYS, 2ND INJ., INTRAMUSCULAR
     Route: 030
     Dates: start: 20030401, end: 20030401
  3. PAXIL [Concomitant]
  4. ALLEGRA [Concomitant]
  5. ENALAPRIL MALEATE [Concomitant]

REACTIONS (4)
  - AMENORRHOEA [None]
  - DEPRESSION [None]
  - THROMBOSIS [None]
  - WEIGHT INCREASED [None]
